FAERS Safety Report 5776635-0 (Version None)
Quarter: 2008Q2

REPORT INFORMATION
  Report Type: 
  Country: None (occurrence: None)
  Receive Date: 20080618
  Receipt Date: 20080609
  Transmission Date: 20081010
  Serious: Yes (Hospitalization)
  Sender: FDA-Public Use
  Company Number: US-ROCHE-563341

PATIENT
  Age: 81 Year
  Sex: Female

DRUGS (9)
  1. BONIVA [Suspect]
     Indication: OSTEOPOROSIS
     Route: 048
     Dates: start: 20070401
  2. WATER PILL NOS [Suspect]
     Indication: DRUG USE FOR UNKNOWN INDICATION
     Route: 065
  3. CALCIUM/VITAMIN D [Concomitant]
  4. CALCIUM/VITAMIN D [Concomitant]
  5. CLARINEX [Concomitant]
  6. CLARINEX [Concomitant]
  7. CLARINEX [Concomitant]
  8. THYROID TAB [Concomitant]
     Indication: THYROID DISORDER
  9. ZOCOR [Concomitant]

REACTIONS (3)
  - HYPOKALAEMIA [None]
  - HYPONATRAEMIA [None]
  - LOSS OF CONSCIOUSNESS [None]
